FAERS Safety Report 18487457 (Version 2)
Quarter: 2020Q4

REPORT INFORMATION
  Report Type: Report from Study
  Country: US (occurrence: US)
  Receive Date: 20201110
  Receipt Date: 20201217
  Transmission Date: 20210114
  Serious: Yes (Other)
  Sender: FDA-Public Use
  Company Number: US-MYLANLABS-2020M1066762

PATIENT
  Sex: Female
  Weight: 64 kg

DRUGS (1)
  1. GLATIRAMER ACETATE INJECTION [Suspect]
     Active Substance: GLATIRAMER ACETATE
     Indication: MULTIPLE SCLEROSIS
     Dosage: 40 MILLIGRAM, 3XW
     Route: 058
     Dates: start: 202006

REACTIONS (8)
  - Anxiety [Unknown]
  - Multiple sclerosis relapse [Unknown]
  - Muscle twitching [Unknown]
  - Insomnia [Unknown]
  - Rash [Unknown]
  - Asthenia [Unknown]
  - Visual impairment [Unknown]
  - Weight increased [Unknown]
